FAERS Safety Report 4297412-6 (Version None)
Quarter: 2004Q1

REPORT INFORMATION
  Report Type: 
  Country: None (occurrence: None)
  Receive Date: 20040213
  Receipt Date: 20040131
  Transmission Date: 20041129
  Serious: Yes (Other)
  Sender: FDA-Public Use
  Company Number: 2003123615

PATIENT
  Sex: Female

DRUGS (13)
  1. LIPITOR [Suspect]
     Indication: ILL-DEFINED DISORDER
  2. NORVASC [Suspect]
     Indication: ILL-DEFINED DISORDER
  3. ACCUPRIL [Suspect]
     Indication: ILL-DEFINED DISORDER
  4. HYDROCHLOROTHIAZIDE [Suspect]
     Indication: ILL-DEFINED DISORDER
  5. POTASSIUM (POTASSIUM) [Suspect]
     Indication: ILL-DEFINED DISORDER
  6. LEVOTHYROXINE SODIUM [Suspect]
     Indication: ILL-DEFINED DISORDER
  7. ATENOLOL [Concomitant]
  8. LITHIUM CARBONATE [Concomitant]
  9. LITHIUM CARBONATE [Concomitant]
  10. FUROSEMIDE [Concomitant]
  11. RANITIDINE [Concomitant]
  12. LEVOTHYROXINE SODIUM [Concomitant]
  13. ALL OTHER THERAPEUTIC PRODUCTS [Concomitant]

REACTIONS (19)
  - ABNORMAL BEHAVIOUR [None]
  - ASTHENIA [None]
  - ATRIAL FIBRILLATION [None]
  - ATRIAL FLUTTER [None]
  - BLOOD GLUCOSE INCREASED [None]
  - BRADYCARDIA [None]
  - BUNDLE BRANCH BLOCK RIGHT [None]
  - CHEST PAIN [None]
  - CREATINE PHOSPHOKINASE DECREASED [None]
  - DIFFICULTY IN WALKING [None]
  - DIZZINESS [None]
  - DRUG LEVEL DECREASED [None]
  - FEELING ABNORMAL [None]
  - HEAT EXHAUSTION [None]
  - HYPOKALAEMIA [None]
  - MUSCLE INJURY [None]
  - NERVE INJURY [None]
  - NERVOUS SYSTEM DISORDER [None]
  - PANIC REACTION [None]
